FAERS Safety Report 8908558 (Version 2)
Quarter: 2012Q4

REPORT INFORMATION
  Report Type: 
  Country: GB (occurrence: GB)
  Receive Date: 20121114
  Receipt Date: 20121207
  Transmission Date: 20130627
  Serious: Yes (Hospitalization)
  Sender: FDA-Public Use
  Company Number: PHHY2012GB104820

PATIENT
  Age: 64 Year
  Sex: Female
  Weight: 66 kg

DRUGS (3)
  1. CARBOPLATIN [Suspect]
     Indication: OVARIAN CANCER
     Dosage: 350 mg with frequency of d1,8,15
     Route: 042
     Dates: start: 20120921
  2. PACLITAXEL [Suspect]
     Indication: OVARIAN CANCER
     Dosage: 141mg with frequency of d1,8,15 q28
     Route: 042
     Dates: start: 20120921
  3. BEVACIZUMAB [Suspect]
     Indication: OVARIAN CANCER
     Dosage: 1000 mg every 21 days
     Route: 042
     Dates: start: 20120921, end: 20121105

REACTIONS (4)
  - Neutropenic sepsis [Recovered/Resolved]
  - Syncope [Recovered/Resolved]
  - Hypertension [Recovered/Resolved]
  - Gastrointestinal disorder [Unknown]
